FAERS Safety Report 19495302 (Version 2)
Quarter: 2021Q3

REPORT INFORMATION
  Report Type: Other
  Country: US (occurrence: US)
  Receive Date: 20210705
  Receipt Date: 20210923
  Transmission Date: 20211014
  Serious: Yes (Other)
  Sender: FDA-Public Use
  Company Number: US-ROCHE-2863431

PATIENT
  Sex: Female

DRUGS (1)
  1. OCREVUS [Suspect]
     Active Substance: OCRELIZUMAB
     Indication: RELAPSING MULTIPLE SCLEROSIS
     Dosage: STRENGTH 300MG/10 ML, 600 MGS IV EVERY 6 MONTHS?NEXT TREATMENT DATE: 07/FEB/2019, 16/AUG/2019, 14/FE
     Route: 042
     Dates: start: 20190111

REACTIONS (1)
  - Multiple sclerosis relapse [Unknown]
